FAERS Safety Report 12169260 (Version 4)
Quarter: 2016Q2

REPORT INFORMATION
  Report Type: Report from Study
  Country: US (occurrence: US)
  Receive Date: 20160310
  Receipt Date: 20160509
  Transmission Date: 20160815
  Serious: Yes (Other)
  Sender: FDA-Public Use
  Company Number: US-BAYER-2016-017520

PATIENT
  Age: 66 Year
  Sex: Female

DRUGS (6)
  1. NEXAVAR [Suspect]
     Active Substance: SORAFENIB
     Indication: THYROID CANCER
     Dosage: 200 MG, QD
     Route: 048
     Dates: start: 20160224
  2. NEXAVAR [Suspect]
     Active Substance: SORAFENIB
     Indication: THYROID CANCER
     Dosage: 200 MG, BID
     Route: 048
     Dates: start: 20160215, end: 20160220
  3. NEXAVAR [Suspect]
     Active Substance: SORAFENIB
     Indication: THYROID CANCER
     Dosage: 200 MG DAILY/400 MG DAILY ON ALTERNATING DAYS
     Route: 048
     Dates: start: 20160327, end: 20160430
  4. NEXAVAR [Suspect]
     Active Substance: SORAFENIB
     Indication: THYROID CANCER
     Dosage: 200 MG, BID
     Route: 048
     Dates: start: 20160205, end: 20160213
  5. NEXAVAR [Suspect]
     Active Substance: SORAFENIB
     Indication: THYROID CANCER
     Dosage: 400 MG, BID ON EMPTY STOMACH
     Route: 048
     Dates: start: 20160122, end: 20160127
  6. NEXAVAR [Suspect]
     Active Substance: SORAFENIB
     Indication: THYROID CANCER
     Dosage: 200 MG, QD
     Route: 048
     Dates: start: 20160501

REACTIONS (25)
  - Nipple pain [None]
  - Pain of skin [None]
  - Diarrhoea [None]
  - Blister [None]
  - Erythema [None]
  - Pain of skin [None]
  - Pain in extremity [Not Recovered/Not Resolved]
  - Pain in extremity [Recovering/Resolving]
  - Alopecia [None]
  - Dysphonia [None]
  - Paraesthesia [None]
  - Blister [None]
  - Skin warm [Recovering/Resolving]
  - Pain in extremity [None]
  - Hypoaesthesia [None]
  - Hyperkeratosis [None]
  - Diarrhoea [None]
  - Palmar-plantar erythrodysaesthesia syndrome [Recovered/Resolved]
  - Pain in extremity [None]
  - Constipation [None]
  - Diarrhoea [Recovered/Resolved]
  - Erythema [Recovering/Resolving]
  - Paraesthesia [None]
  - Gait disturbance [Not Recovered/Not Resolved]
  - Palmar-plantar erythrodysaesthesia syndrome [None]

NARRATIVE: CASE EVENT DATE: 2016
